FAERS Safety Report 10895966 (Version 1)
Quarter: 2015Q1

REPORT INFORMATION
  Report Type: Spontaneous
  Country: US (occurrence: US)
  Receive Date: 20150308
  Receipt Date: 20150308
  Transmission Date: 20150721
  Serious: No
  Sender: FDA-Public Use
  Company Number: US-ASTRAZENECA-2015SE17860

PATIENT
  Age: 73 Year
  Sex: Female
  Weight: 88.9 kg

DRUGS (1)
  1. BYDUREON [Suspect]
     Active Substance: EXENATIDE
     Indication: TYPE 2 DIABETES MELLITUS
     Route: 058

REACTIONS (4)
  - Respiratory tract congestion [Recovered/Resolved]
  - Drug ineffective [Unknown]
  - Injection site pain [Unknown]
  - Influenza [Recovered/Resolved]
